FAERS Safety Report 8045336-0 (Version None)
Quarter: 2012Q1

REPORT INFORMATION
  Report Type: 
  Country: None (occurrence: None)
  Receive Date: 20120113
  Receipt Date: 20120106
  Transmission Date: 20120608
  Serious: Yes (Hospitalization)
  Sender: FDA-Public Use
  Company Number: AU-B.I. PHARMACEUTICALS,INC./RIDGEFIELD-2011-AU-02277AU

PATIENT
  Sex: Female
  Weight: 51 kg

DRUGS (10)
  1. VITAMIN D [Concomitant]
     Dosage: 2000 U
     Route: 048
  2. WARFARIN SODIUM [Suspect]
     Indication: ATRIAL FIBRILLATION
  3. DIGOXIN [Concomitant]
     Dosage: 62.5 MCG
     Route: 048
  4. PROPRANOLOL [Concomitant]
     Dosage: 80 MG
  5. PRADAXA [Suspect]
     Indication: CEREBROVASCULAR ACCIDENT PROPHYLAXIS
     Dosage: 220 MG
     Dates: start: 20110706, end: 20111017
  6. ACETAMINOPHEN AND CODEINE PHOSPHATE [Suspect]
  7. MICARDIS HCT [Suspect]
     Dosage: 80MG/12.5MG
  8. PRADAXA [Suspect]
     Indication: ATRIAL FIBRILLATION
  9. RABEPRAZOLE SODIUM [Concomitant]
     Indication: DYSPEPSIA
     Dosage: 20 MG
     Route: 048
  10. TEMAZEPAM [Concomitant]
     Dosage: 5-10MG NOCTE (ONCE PER WEEK)

REACTIONS (22)
  - BLOOD PRESSURE INCREASED [None]
  - MELAENA [None]
  - HAEMORRHAGE [None]
  - ELECTROLYTE IMBALANCE [None]
  - LETHARGY [None]
  - DEHYDRATION [None]
  - ACUTE PULMONARY OEDEMA [None]
  - EPISTAXIS [None]
  - RENAL IMPAIRMENT [None]
  - EMBOLISM [None]
  - POLLAKIURIA [None]
  - LOBAR PNEUMONIA [None]
  - ABDOMINAL TENDERNESS [None]
  - THIRST [None]
  - BLOOD URINE PRESENT [None]
  - NASAL ULCER [None]
  - FLUID OVERLOAD [None]
  - GASTROOESOPHAGEAL REFLUX DISEASE [None]
  - DIARRHOEA [None]
  - BLADDER DISCOMFORT [None]
  - VOMITING [None]
  - HAEMATOMA [None]
